FAERS Safety Report 19262481 (Version 1)
Quarter: 2021Q2

REPORT INFORMATION
  Report Type: Spontaneous
  Country: GB (occurrence: GB)
  Receive Date: 20210517
  Receipt Date: 20210517
  Transmission Date: 20210717
  Serious: Yes (Disabling, Other)
  Sender: FDA-Public Use
  Company Number: GB-SA-2021SA149265

PATIENT
  Age: 41 Year
  Sex: Female
  Weight: 60 kg

DRUGS (4)
  1. SALBUTAMOL [Concomitant]
     Active Substance: ALBUTEROL
     Dosage: 2 DF, QID (2 PUFF FOUR TIME)
     Route: 065
     Dates: start: 20200520
  2. FEXOFENADINE HYDROCHLORIDE. [Suspect]
     Active Substance: FEXOFENADINE HYDROCHLORIDE
     Indication: RHINITIS
     Dosage: 180 MG
     Route: 065
  3. CINCHOCAINE [Concomitant]
     Active Substance: DIBUCAINE
     Dosage: APPLY TWICE DAILY FOR FIVE OR SEVEN DAYS (THREE...
     Route: 065
     Dates: start: 20210408, end: 20210420
  4. EPADERM [Concomitant]
     Active Substance: MINERAL OIL\PETROLATUM\WAX, EMULSIFYING
     Dosage: USE AS DIRECTED
     Route: 065
     Dates: start: 20200520

REACTIONS (4)
  - Neck pain [Recovering/Resolving]
  - Myalgia [Recovering/Resolving]
  - Muscle spasms [Unknown]
  - Musculoskeletal stiffness [Recovering/Resolving]

NARRATIVE: CASE EVENT DATE: 20210413
